FAERS Safety Report 8272934-1 (Version None)
Quarter: 2012Q2

REPORT INFORMATION
  Report Type: 
  Country: None (occurrence: None)
  Receive Date: 20120411
  Receipt Date: 20120330
  Transmission Date: 20120825
  Serious: Yes (Hospitalization, Other)
  Sender: FDA-Public Use
  Company Number: GB-ELI_LILLY_AND_COMPANY-GB201204000730

PATIENT
  Age: 30 Year
  Sex: Female

DRUGS (1)
  1. STRATTERA [Suspect]
     Dosage: UNK

REACTIONS (3)
  - ADVERSE EVENT [None]
  - JAUNDICE [None]
  - CHOLECYSTECTOMY [None]
